FAERS Safety Report 10357841 (Version 3)
Quarter: 2014Q3

REPORT INFORMATION
  Report Type: Spontaneous
  Country: US (occurrence: US)
  Receive Date: 20140801
  Receipt Date: 20140820
  Transmission Date: 20150326
  Serious: Yes (Death, Hospitalization)
  Sender: FDA-Public Use
  Company Number: US-GLAXOSMITHKLINE-A0733497A

PATIENT
  Sex: Male
  Weight: 126.8 kg

DRUGS (10)
  1. GLIMEPIRIDE. [Concomitant]
     Active Substance: GLIMEPIRIDE
  2. AVANDIA [Suspect]
     Active Substance: ROSIGLITAZONE MALEATE
     Indication: TYPE 2 DIABETES MELLITUS
     Dosage: 4MG TWICE PER DAY
     Route: 048
     Dates: start: 200505, end: 200706
  3. ALBUTEROL. [Concomitant]
     Active Substance: ALBUTEROL
  4. NITROGLYCERIN. [Concomitant]
     Active Substance: NITROGLYCERIN
  5. HEPARIN [Concomitant]
     Active Substance: HEPARIN SODIUM
  6. AVANDAMET [Suspect]
     Active Substance: METFORMIN HYDROCHLORIDE\ROSIGLITAZONE MALEATE
     Indication: TYPE 2 DIABETES MELLITUS
     Route: 048
     Dates: start: 200308, end: 200705
  7. ALTACE [Concomitant]
     Active Substance: RAMIPRIL
  8. LASIX [Concomitant]
     Active Substance: FUROSEMIDE
     Dates: end: 200705
  9. ASPIRIN. [Concomitant]
     Active Substance: ASPIRIN
  10. INTEGRILIN [Concomitant]
     Active Substance: EPTIFIBATIDE

REACTIONS (4)
  - Myocardial infarction [Fatal]
  - Coronary artery disease [Unknown]
  - Cardiac failure congestive [Unknown]
  - Cardiac arrest [Unknown]
